FAERS Safety Report 8348675-9 (Version None)
Quarter: 2012Q2

REPORT INFORMATION
  Report Type: 
  Country: None (occurrence: None)
  Receive Date: 20120507
  Receipt Date: 20120427
  Transmission Date: 20120825
  Serious: Yes (Life-Threatening, Hospitalization, Other)
  Sender: FDA-Public Use
  Company Number: 2012P1018504

PATIENT
  Age: 45 Year
  Sex: Female

DRUGS (1)
  1. DIGOXIN [Suspect]
     Indication: SUICIDE ATTEMPT
     Dosage: 25 MG;X1;PO
     Route: 048

REACTIONS (16)
  - NAUSEA [None]
  - ARRHYTHMIA [None]
  - ATRIOVENTRICULAR BLOCK FIRST DEGREE [None]
  - BLOOD PRESSURE DECREASED [None]
  - SUICIDE ATTEMPT [None]
  - CARDIOACTIVE DRUG LEVEL ABOVE THERAPEUTIC [None]
  - PAIN [None]
  - INCORRECT DOSE ADMINISTERED [None]
  - EXTRASYSTOLES [None]
  - POISONING [None]
  - ATRIOVENTRICULAR BLOCK [None]
  - SLUGGISHNESS [None]
  - DIZZINESS [None]
  - VOMITING [None]
  - ATRIOVENTRICULAR BLOCK COMPLETE [None]
  - ATRIOVENTRICULAR BLOCK SECOND DEGREE [None]
